FAERS Safety Report 4698122-3 (Version None)
Quarter: 2005Q2

REPORT INFORMATION
  Report Type: 
  Country: None (occurrence: None)
  Receive Date: 20050126
  Receipt Date: 20050126
  Transmission Date: 20051028
  Serious: No
  Sender: FDA-Public Use
  Company Number: None

PATIENT
  Sex: Male

DRUGS (4)
  1. ALPRAZOLAM [Suspect]
     Indication: GENERALISED ANXIETY DISORDER
     Dosage: 2MG  QID  MONTHLY
  2. ALPRAZOLAM [Suspect]
     Indication: OBSESSIVE-COMPULSIVE DISORDER
     Dosage: 2MG  QID  MONTHLY
  3. EFFEXOR XR [Concomitant]
  4. NEURONTIN [Concomitant]

REACTIONS (2)
  - PHARMACEUTICAL PRODUCT COMPLAINT [None]
  - RASH GENERALISED [None]
